FAERS Safety Report 13768304 (Version 2)
Quarter: 2017Q3

REPORT INFORMATION
  Report Type: Spontaneous
  Country: US (occurrence: US)
  Receive Date: 20170719
  Receipt Date: 20170724
  Transmission Date: 20171127
  Serious: Yes (Other)
  Sender: FDA-Public Use
  Company Number: US-PFIZER INC-2017310434

PATIENT
  Age: 76 Year
  Sex: Male

DRUGS (1)
  1. PROPANOLOL HCL [Suspect]
     Active Substance: PROPRANOLOL HYDROCHLORIDE
     Indication: PALPITATIONS
     Dosage: 10 MG, UNK (2 DOSE DURING A 3-AND-A-HALF-HOUR PERIOD)
     Route: 048

REACTIONS (1)
  - Electrocardiogram PR prolongation [Recovered/Resolved]
